FAERS Safety Report 4447525-0 (Version None)
Quarter: 2004Q3

REPORT INFORMATION
  Report Type: 
  Country: None (occurrence: None)
  Receive Date: 20040823
  Receipt Date: 20040629
  Transmission Date: 20050211
  Serious: No
  Sender: FDA-Public Use
  Company Number: PHEH2004US06077

PATIENT
  Age: 84 Year
  Sex: Female

DRUGS (5)
  1. ZELNORM [Suspect]
     Indication: IRRITABLE BOWEL SYNDROME
     Dosage: 6 MG, BID
     Dates: start: 20040510
  2. RESTORIL [Concomitant]
  3. ATIVAN [Concomitant]
  4. MILK OF MAGNESIA TAB [Concomitant]
  5. ZANTAC [Concomitant]

REACTIONS (6)
  - CONSTIPATION [None]
  - DIZZINESS [None]
  - DRUG INEFFECTIVE [None]
  - FUNGAL INFECTION [None]
  - NAUSEA [None]
  - RASH PRURITIC [None]
